FAERS Safety Report 13763760 (Version 3)
Quarter: 2017Q3

REPORT INFORMATION
  Report Type: Report from Study
  Country: GB (occurrence: GB)
  Receive Date: 20170718
  Receipt Date: 20170818
  Transmission Date: 20171127
  Serious: Yes (Death, Hospitalization)
  Sender: FDA-Public Use
  Company Number: GB-VERTEX PHARMACEUTICALS-2017-003702

PATIENT
  Age: 13 Year
  Sex: Female

DRUGS (14)
  1. MEROPENEM. [Concomitant]
     Active Substance: MEROPENEM
  2. VITAMIN E [Concomitant]
     Active Substance: .ALPHA.-TOCOPHEROL
  3. CREON [Concomitant]
     Active Substance: PANCRELIPASE AMYLASE\PANCRELIPASE LIPASE\PANCRELIPASE PROTEASE
  4. CYCLIZINE [Concomitant]
     Active Substance: CYCLIZINE
  5. DEOXYRIBONUCLEASE HUMAN [Concomitant]
  6. OMEPRAZOLE. [Concomitant]
     Active Substance: OMEPRAZOLE
  7. MICAFUNGIN [Concomitant]
     Active Substance: MICAFUNGIN
  8. VITAMIN K [Concomitant]
     Active Substance: PHYTONADIONE
  9. MIDAZOLAM [Concomitant]
     Active Substance: MIDAZOLAM HYDROCHLORIDE
  10. MORPHINE [Concomitant]
     Active Substance: MORPHINE
  11. ORKAMBI [Suspect]
     Active Substance: IVACAFTOR\LUMACAFTOR
     Indication: CYSTIC FIBROSIS
     Dosage: 2 TABLETS (200/125MG EACH), BID
     Route: 048
     Dates: end: 20170609
  12. ONDANSETRON [Concomitant]
     Active Substance: ONDANSETRON
  13. CEFTAZIDIME. [Concomitant]
     Active Substance: CEFTAZIDIME
  14. SERETIDE [Concomitant]
     Active Substance: FLUTICASONE PROPIONATE\SALMETEROL XINAFOATE

REACTIONS (3)
  - Cystic fibrosis lung [Fatal]
  - Pneumothorax [Unknown]
  - Infective pulmonary exacerbation of cystic fibrosis [Unknown]

NARRATIVE: CASE EVENT DATE: 2017
